FAERS Safety Report 18338224 (Version 1)
Quarter: 2020Q4

REPORT INFORMATION
  Report Type: Spontaneous
  Country: US (occurrence: US)
  Receive Date: 20201002
  Receipt Date: 20201002
  Transmission Date: 20210113
  Serious: No
  Sender: FDA-Public Use
  Company Number: US-BEH-2020122797

PATIENT
  Sex: Female

DRUGS (3)
  1. HIZENTRA [Suspect]
     Active Substance: HUMAN IMMUNOGLOBULIN G
     Indication: MIGRAINE
  2. HIZENTRA [Suspect]
     Active Substance: HUMAN IMMUNOGLOBULIN G
     Indication: IMMUNODEFICIENCY COMMON VARIABLE
     Dosage: 6 GRAM, BIW
     Route: 058
     Dates: start: 20190618
  3. HIZENTRA [Suspect]
     Active Substance: HUMAN IMMUNOGLOBULIN G
     Indication: MIGRAINE WITHOUT AURA

REACTIONS (7)
  - Urine output decreased [Unknown]
  - Swelling [Unknown]
  - Weight decreased [Unknown]
  - No adverse event [Unknown]
  - Pain [Unknown]
  - Headache [Unknown]
  - Product use in unapproved indication [Unknown]
